FAERS Safety Report 21854796 (Version 1)
Quarter: 2023Q1

REPORT INFORMATION
  Report Type: Spontaneous
  Country: US (occurrence: None)
  Receive Date: 20230111
  Receipt Date: 20230111
  Transmission Date: 20230417
  Serious: Yes (Other)
  Sender: FDA-Public Use
  Company Number: None

PATIENT
  Age: 44 Year
  Sex: Male
  Weight: 104.4 kg

DRUGS (5)
  1. QELBREE [Suspect]
     Active Substance: VILOXAZINE HYDROCHLORIDE
     Indication: Attention deficit hyperactivity disorder
     Dosage: OTHER QUANTITY : 1 CAPSULE(S);?
     Route: 048
     Dates: start: 20230105, end: 20230111
  2. WELLBUTRIN [Concomitant]
     Active Substance: BUPROPION HYDROCHLORIDE
  3. LAMICTAL [Concomitant]
     Active Substance: LAMOTRIGINE
  4. BUSPAR [Concomitant]
     Active Substance: BUSPIRONE HYDROCHLORIDE
  5. GABAPENTIN [Concomitant]
     Active Substance: GABAPENTIN

REACTIONS (13)
  - Thinking abnormal [None]
  - Affective disorder [None]
  - Initial insomnia [None]
  - Middle insomnia [None]
  - Energy increased [None]
  - Hyperaesthesia [None]
  - Tachyphrenia [None]
  - Sensory disturbance [None]
  - Emotional poverty [None]
  - Indifference [None]
  - Depression [None]
  - Feeling abnormal [None]
  - Drug dependence [None]

NARRATIVE: CASE EVENT DATE: 20230111
